FAERS Safety Report 14670288 (Version 2)
Quarter: 2018Q2

REPORT INFORMATION
  Report Type: Spontaneous
  Country: US (occurrence: US)
  Receive Date: 20180322
  Receipt Date: 20180409
  Transmission Date: 20180711
  Serious: Yes (Hospitalization)
  Sender: FDA-Public Use
  Company Number: US-TEVA-2018-US-873047

PATIENT
  Age: 29 Year
  Sex: Male

DRUGS (4)
  1. BUDESONIDE. [Suspect]
     Active Substance: BUDESONIDE
     Indication: AUTOIMMUNE HEPATITIS
     Dosage: DUAL MEDICATION REGIMEN WITH MERCAPTOPURINE
     Route: 065
  2. 6-MERCAPTOPURINE [Interacting]
     Active Substance: MERCAPTOPURINE
     Indication: AUTOIMMUNE HEPATITIS
     Dosage: DUAL MEDICATION REGIMEN WITH BUDESONIDE
     Route: 065
  3. MESALAMINE. [Interacting]
     Active Substance: MESALAMINE
     Indication: COLITIS ULCERATIVE
     Route: 065
  4. SIROLIMUS. [Suspect]
     Active Substance: SIROLIMUS
     Indication: AUTOIMMUNE HEPATITIS
     Route: 065

REACTIONS (6)
  - Haemorrhagic diathesis [Unknown]
  - Febrile neutropenia [Recovering/Resolving]
  - Drug interaction [Recovering/Resolving]
  - Bone marrow failure [Recovering/Resolving]
  - Epistaxis [Unknown]
  - Cellulitis [Recovering/Resolving]
